FAERS Safety Report 8462117-4 (Version None)
Quarter: 2012Q2

REPORT INFORMATION
  Report Type: 
  Country: None (occurrence: None)
  Receive Date: 20120625
  Receipt Date: 20120619
  Transmission Date: 20120825
  Serious: Yes (Other)
  Sender: FDA-Public Use
  Company Number: AU-PFIZER INC-2012148782

PATIENT
  Age: 78 Year
  Sex: Female

DRUGS (2)
  1. INSULIN [Concomitant]
  2. LIPITOR [Suspect]
     Indication: HYPERCHOLESTEROLAEMIA
     Dosage: 40 MG, 1X/DAY
     Route: 048
     Dates: end: 20120401

REACTIONS (1)
  - COGNITIVE DISORDER [None]
